FAERS Safety Report 25241906 (Version 2)
Quarter: 2025Q2

REPORT INFORMATION
  Report Type: Spontaneous
  Country: FR (occurrence: FR)
  Receive Date: 20250428
  Receipt Date: 20250610
  Transmission Date: 20250716
  Serious: Yes (Hospitalization)
  Sender: ABBVIE
  Company Number: FR-ABBVIE-6248561

PATIENT
  Age: 58 Year
  Sex: Female
  Weight: 64.7 kg

DRUGS (5)
  1. RINVOQ [Suspect]
     Active Substance: UPADACITINIB
     Indication: Psoriatic arthropathy
     Route: 048
     Dates: start: 202407, end: 20250301
  2. RINVOQ [Suspect]
     Active Substance: UPADACITINIB
     Indication: Psoriatic arthropathy
     Route: 048
     Dates: start: 20250410
  3. AUGMENTIN [Suspect]
     Active Substance: AMOXICILLIN\CLAVULANATE POTASSIUM
     Indication: Product used for unknown indication
     Route: 065
  4. PREDNISOLONE SODIUM METAZOATE [Suspect]
     Active Substance: PREDNISOLONE SODIUM METAZOATE
     Indication: Product used for unknown indication
     Route: 065
  5. METHOTREXATE [Concomitant]
     Active Substance: METHOTREXATE
     Indication: Spinal disorder
     Route: 048
     Dates: start: 202303, end: 20250301

REACTIONS (10)
  - Laryngitis [Recovered/Resolved]
  - Hepatitis C [Recovered/Resolved]
  - Pharyngeal disorder [Unknown]
  - Angina unstable [Unknown]
  - Mucosal hypertrophy [Unknown]
  - Tonsillar hypertrophy [Unknown]
  - Herpes simplex test positive [Unknown]
  - Epstein-Barr virus test positive [Unknown]
  - White blood cell count increased [Unknown]
  - Neutrophil count increased [Unknown]

NARRATIVE: CASE EVENT DATE: 20250228
